FAERS Safety Report 9551837 (Version 3)
Quarter: 2014Q3

REPORT INFORMATION
  Report Type: Spontaneous
  Country: US (occurrence: US)
  Receive Date: 20130925
  Receipt Date: 20140717
  Transmission Date: 20150326
  Serious: Yes (Life-Threatening, Hospitalization, Other)
  Sender: FDA-Public Use
  Company Number: US-BAYER-2013-115736

PATIENT
  Age: 30 Year
  Sex: Female
  Weight: 59.86 kg

DRUGS (5)
  1. MIRENA [Suspect]
     Active Substance: LEVONORGESTREL
     Indication: CONTRACEPTION
     Dosage: 20 MCG/24HR, CONT
     Route: 015
     Dates: start: 20060426, end: 20110920
  2. MIRENA [Suspect]
     Active Substance: LEVONORGESTREL
     Indication: CONTRACEPTION
     Dosage: 20 MCG/24HR, CONT
     Route: 015
     Dates: start: 200305, end: 20050408
  3. LORTAB [Concomitant]
     Active Substance: ACETAMINOPHEN\HYDROCODONE BITARTRATE
     Indication: PAIN
     Dosage: UNK
     Dates: start: 2005, end: 2013
  4. MAXALT [Concomitant]
     Active Substance: RIZATRIPTAN BENZOATE
     Indication: MIGRAINE
     Dosage: UNK
     Dates: start: 2007, end: 2012
  5. AMBIEN [Concomitant]
     Active Substance: ZOLPIDEM TARTRATE
     Indication: INSOMNIA
     Dosage: UNK
     Dates: start: 2005, end: 2011

REACTIONS (22)
  - Pelvic pain [None]
  - Injury [None]
  - Anhedonia [None]
  - Infection [None]
  - Pelvic adhesions [None]
  - Device misuse [None]
  - Drug ineffective [None]
  - Abdominal pain [None]
  - Vaginismus [None]
  - Vaginal haemorrhage [None]
  - Pregnancy with contraceptive device [None]
  - Device dislocation [None]
  - Stress [None]
  - Device issue [None]
  - Chills [None]
  - General physical health deterioration [None]
  - Ovarian cyst [None]
  - Peritoneal adhesions [None]
  - Uterine perforation [None]
  - Pyrexia [None]
  - Anxiety [None]
  - Abscess [None]

NARRATIVE: CASE EVENT DATE: 2007
